FAERS Safety Report 13626475 (Version 1)
Quarter: 2017Q2

REPORT INFORMATION
  Report Type: Spontaneous
  Country: US (occurrence: US)
  Receive Date: 20170531
  Receipt Date: 20170531
  Transmission Date: 20170830
  Serious: Yes (Other)
  Sender: FDA-Public Use
  Company Number: US-ASTELLAS-1390835

PATIENT
  Age: 61 Year
  Sex: Female
  Weight: 70.37 kg

DRUGS (2)
  1. TARCEVA [Suspect]
     Active Substance: ERLOTINIB HYDROCHLORIDE
     Indication: PANCREATIC CARCINOMA
     Route: 048
     Dates: start: 20140401, end: 20150216
  2. TARCEVA [Suspect]
     Active Substance: ERLOTINIB HYDROCHLORIDE
     Indication: LUNG NEOPLASM MALIGNANT

REACTIONS (12)
  - Rash [Recovered/Resolved]
  - Asthenia [Unknown]
  - Fatigue [Unknown]
  - Nausea [Recovered/Resolved]
  - Skin exfoliation [Unknown]
  - Paronychia [Unknown]
  - Haemorrhage [Recovering/Resolving]
  - Dry eye [Unknown]
  - Nail disorder [Unknown]
  - Onychoclasis [Unknown]
  - Fatigue [Recovered/Resolved]
  - Peripheral swelling [Recovering/Resolving]

NARRATIVE: CASE EVENT DATE: 201404
